FAERS Safety Report 18607181 (Version 3)
Quarter: 2020Q4

REPORT INFORMATION
  Report Type: Spontaneous
  Country: US (occurrence: US)
  Receive Date: 20201212
  Receipt Date: 20201221
  Transmission Date: 20210114
  Serious: Yes (Other)
  Sender: FDA-Public Use
  Company Number: US-ROCHE-2731495

PATIENT
  Age: 80 Year
  Sex: Female
  Weight: 52.8 kg

DRUGS (5)
  1. LEVOTHYROXINE. [Concomitant]
     Active Substance: LEVOTHYROXINE
  2. ZELBORAF [Suspect]
     Active Substance: VEMURAFENIB
     Indication: HAIRY CELL LEUKAEMIA
     Dosage: ONGOING: YES
     Route: 048
     Dates: start: 20201028
  3. TURMERIC [Concomitant]
     Active Substance: HERBALS\TURMERIC
  4. CALCIUM VITAMIN D [Concomitant]
     Active Substance: CALCIUM\VITAMIN D
  5. ASPIRIN. [Concomitant]
     Active Substance: ASPIRIN

REACTIONS (3)
  - Intentional product use issue [Unknown]
  - Off label use [Unknown]
  - Squamous cell carcinoma [Unknown]

NARRATIVE: CASE EVENT DATE: 20201210
